FAERS Safety Report 19655736 (Version 1)
Quarter: 2021Q3

REPORT INFORMATION
  Report Type: Spontaneous
  Country: US (occurrence: US)
  Receive Date: 20210804
  Receipt Date: 20210804
  Transmission Date: 20211014
  Serious: Yes (Other)
  Sender: FDA-Public Use
  Company Number: US-STRIDES ARCOLAB LIMITED-2021SP005236

PATIENT

DRUGS (20)
  1. GABAPENTIN. [Suspect]
     Active Substance: GABAPENTIN
     Indication: MYOCLONIC EPILEPSY
     Dosage: UNK
     Route: 065
  2. LEVETIRACETAM. [Suspect]
     Active Substance: LEVETIRACETAM
     Indication: GELASTIC SEIZURE
  3. PHENOBARBITAL. [Suspect]
     Active Substance: PHENOBARBITAL
     Indication: GELASTIC SEIZURE
  4. LEVETIRACETAM. [Suspect]
     Active Substance: LEVETIRACETAM
     Indication: MYOCLONIC EPILEPSY
     Dosage: UNK
     Route: 065
  5. ZONISAMIDE. [Suspect]
     Active Substance: ZONISAMIDE
     Indication: MYOCLONIC EPILEPSY
     Dosage: UNK
     Route: 065
  6. CLONAZEPAM. [Suspect]
     Active Substance: CLONAZEPAM
     Indication: MYOCLONIC EPILEPSY
     Dosage: UNK
     Route: 065
  7. PRIMIDONE. [Suspect]
     Active Substance: PRIMIDONE
     Indication: MYOCLONIC EPILEPSY
     Dosage: UNK
     Route: 065
  8. OXCARBAZEPINE. [Suspect]
     Active Substance: OXCARBAZEPINE
     Indication: MYOCLONIC EPILEPSY
     Dosage: UNK
     Route: 065
  9. GABAPENTIN. [Suspect]
     Active Substance: GABAPENTIN
     Indication: GELASTIC SEIZURE
  10. LAMOTRIGINE. [Suspect]
     Active Substance: LAMOTRIGINE
     Indication: MYOCLONIC EPILEPSY
     Dosage: UNK
     Route: 065
  11. FELBAMATE. [Suspect]
     Active Substance: FELBAMATE
     Indication: MYOCLONIC EPILEPSY
     Dosage: UNK
     Route: 065
  12. FELBAMATE. [Suspect]
     Active Substance: FELBAMATE
     Indication: GELASTIC SEIZURE
  13. CLONAZEPAM. [Suspect]
     Active Substance: CLONAZEPAM
     Indication: GELASTIC SEIZURE
  14. OXCARBAZEPINE. [Suspect]
     Active Substance: OXCARBAZEPINE
     Indication: GELASTIC SEIZURE
  15. ZONISAMIDE. [Suspect]
     Active Substance: ZONISAMIDE
     Indication: GELASTIC SEIZURE
  16. PRIMIDONE. [Suspect]
     Active Substance: PRIMIDONE
     Indication: GELASTIC SEIZURE
  17. PHENOBARBITAL. [Suspect]
     Active Substance: PHENOBARBITAL
     Indication: MYOCLONIC EPILEPSY
     Dosage: UNK
     Route: 065
  18. VALPROIC ACID. [Suspect]
     Active Substance: VALPROIC ACID
     Indication: MYOCLONIC EPILEPSY
     Dosage: UNK
     Route: 065
  19. LAMOTRIGINE. [Suspect]
     Active Substance: LAMOTRIGINE
     Indication: GELASTIC SEIZURE
  20. VALPROIC ACID. [Suspect]
     Active Substance: VALPROIC ACID
     Indication: GELASTIC SEIZURE

REACTIONS (2)
  - Drug ineffective [Unknown]
  - Condition aggravated [Unknown]
